FAERS Safety Report 25619414 (Version 2)
Quarter: 2025Q3

REPORT INFORMATION
  Report Type: Report from Study
  Country: US (occurrence: US)
  Receive Date: 20250729
  Receipt Date: 20250820
  Transmission Date: 20251020
  Serious: Yes (Other)
  Sender: ALEXION PHARMACEUTICALS
  Company Number: US-AstraZeneca-CH-00916042A

PATIENT
  Age: 23 Year
  Sex: Female

DRUGS (1)
  1. ULTOMIRIS [Suspect]
     Active Substance: RAVULIZUMAB-CWVZ
     Indication: Neuromyelitis optica spectrum disorder
     Dosage: UNK, Q8W

REACTIONS (8)
  - Seizure [Recovered/Resolved]
  - Burning sensation [Recovered/Resolved]
  - Flushing [Recovered/Resolved]
  - Pallor [Recovered/Resolved]
  - Cyanosis [Recovered/Resolved]
  - Hyperhidrosis [Recovered/Resolved]
  - Cold sweat [Recovered/Resolved]
  - Heart rate increased [Recovered/Resolved]

NARRATIVE: CASE EVENT DATE: 20250703
